FAERS Safety Report 5167116-6 (Version None)
Quarter: 2006Q4

REPORT INFORMATION
  Report Type: 
  Country: None (occurrence: None)
  Receive Date: 20061207
  Receipt Date: 20061201
  Transmission Date: 20070319
  Serious: Yes (Hospitalization)
  Sender: FDA-Public Use
  Company Number: FR-GLAXOSMITHKLINE-B0449180A

PATIENT
  Age: 64 Year
  Sex: Male

DRUGS (8)
  1. ZOFRAN [Suspect]
     Dosage: 3MG SINGLE DOSE
     Route: 042
     Dates: start: 20060920, end: 20060920
  2. SOLU-MEDROL [Suspect]
     Dosage: 120MG CYCLIC
     Route: 042
     Dates: start: 20060426, end: 20060920
  3. POLARAMINE [Concomitant]
     Dosage: 5MG CYCLIC
     Route: 065
     Dates: start: 20060426
  4. CALCIUM [Concomitant]
     Route: 065
     Dates: start: 20060426
  5. MAGNESIUM [Concomitant]
     Route: 065
     Dates: start: 20060426
  6. 5% GLUCOSE [Concomitant]
     Route: 065
     Dates: start: 20060426
  7. OXALIPLATIN [Concomitant]
     Dosage: 125MG CYCLIC
     Route: 065
     Dates: start: 20060426
  8. FLUOROURACIL [Concomitant]
     Dosage: 3550MG CYCLIC
     Route: 065
     Dates: start: 20060426

REACTIONS (7)
  - ANAPHYLACTIC SHOCK [None]
  - BRADYCARDIA [None]
  - ERYTHEMA [None]
  - HYPOTENSION [None]
  - MALAISE [None]
  - THROMBOCYTOPENIA [None]
  - VERTIGO [None]
